FAERS Safety Report 17895314 (Version 1)
Quarter: 2020Q2

REPORT INFORMATION
  Report Type: Other
  Country: IN (occurrence: IN)
  Receive Date: 20200615
  Receipt Date: 20200615
  Transmission Date: 20200714
  Serious: Yes (Other)
  Sender: FDA-Public Use
  Company Number: IN-NUVO PHARMACEUTICALS INC-2085848

PATIENT
  Age: 28 Year
  Sex: Male

DRUGS (2)
  1. HYDROXYZINE HYDROCHLORIDE. [Suspect]
     Active Substance: HYDROXYZINE HYDROCHLORIDE
     Indication: URTICARIA
     Route: 048
  2. FEXOFENADINE [Suspect]
     Active Substance: FEXOFENADINE HYDROCHLORIDE
     Route: 048

REACTIONS (3)
  - Vision blurred [Unknown]
  - Photophobia [Unknown]
  - Cataract [Unknown]
